FAERS Safety Report 13567769 (Version 1)
Quarter: 2017Q2

REPORT INFORMATION
  Report Type: Spontaneous
  Country: US (occurrence: US)
  Receive Date: 20170521
  Receipt Date: 20170521
  Transmission Date: 20170830
  Serious: Yes (Hospitalization)
  Sender: FDA-Public Use
  Company Number: None

PATIENT
  Age: 49 Year
  Sex: Male
  Weight: 117.5 kg

DRUGS (6)
  1. CYCLOPHOSPHAMIDE. [Suspect]
     Active Substance: CYCLOPHOSPHAMIDE
     Dates: end: 20170313
  2. MERCAPTOPURINE. [Suspect]
     Active Substance: MERCAPTOPURINE
     Dates: end: 20170326
  3. CYTARABINE. [Suspect]
     Active Substance: CYTARABINE
     Dates: end: 20170323
  4. DEXAMETHASONE. [Suspect]
     Active Substance: DEXAMETHASONE
     Dates: end: 20170313
  5. PEG-L-ASPARAGINASE [Suspect]
     Active Substance: PEGASPARGASE
     Dates: end: 20170327
  6. METHOTREXATE. [Suspect]
     Active Substance: METHOTREXATE
     Dates: end: 20170320

REACTIONS (10)
  - Osteonecrosis [None]
  - Muscle strain [None]
  - Febrile neutropenia [None]
  - Spondylitis [None]
  - Arthralgia [None]
  - Soft tissue infection [None]
  - Therapy non-responder [None]
  - Bone pain [None]
  - Injury [None]
  - Ligament sprain [None]

NARRATIVE: CASE EVENT DATE: 20170405
